FAERS Safety Report 6597221-9 (Version None)
Quarter: 2010Q1

REPORT INFORMATION
  Report Type: 
  Country: None (occurrence: None)
  Receive Date: 20100212
  Receipt Date: 20100127
  Transmission Date: 20100710
  Serious: Yes (Hospitalization)
  Sender: FDA-Public Use
  Company Number: C-10-0024

PATIENT
  Age: 39 Year
  Sex: Male
  Weight: 78.0187 kg

DRUGS (14)
  1. PROMETHAZINE [Suspect]
     Indication: NAUSEA
     Dosage: 4TSP EVERY 4-6 HRS 047
     Dates: start: 20100104, end: 20100114
  2. COUMADIN [Concomitant]
  3. DILAUDID [Concomitant]
  4. LACTULOSE [Concomitant]
  5. VENTOLIN [Concomitant]
  6. BACLOFEN [Concomitant]
  7. LYRICA [Concomitant]
  8. LANTUS [Concomitant]
  9. HUMALOG [Concomitant]
  10. ATENOLOL [Concomitant]
  11. LASIX [Concomitant]
  12. CREON [Concomitant]
  13. VALIUM [Concomitant]
  14. TRAZODONE HCL [Concomitant]

REACTIONS (14)
  - ABDOMINAL PAIN [None]
  - CHOLANGITIS SCLEROSING [None]
  - DIABETES MELLITUS [None]
  - FLUID RETENTION [None]
  - HEPATIC STEATOSIS [None]
  - LIVER INJURY [None]
  - NEUROPATHY PERIPHERAL [None]
  - PANCREATIC DUCT OBSTRUCTION [None]
  - PANCREATIC INSUFFICIENCY [None]
  - PANCREATITIS ACUTE [None]
  - PANCREATITIS CHRONIC [None]
  - PRODUCT COLOUR ISSUE [None]
  - SHORT-BOWEL SYNDROME [None]
  - WEIGHT INCREASED [None]
